FAERS Safety Report 23754273 (Version 2)
Quarter: 2024Q2

REPORT INFORMATION
  Report Type: Report from Study
  Country: JP (occurrence: JP)
  Receive Date: 20240418
  Receipt Date: 20240506
  Transmission Date: 20240716
  Serious: Yes (Other)
  Sender: FDA-Public Use
  Company Number: JP-TAKEDA-2024TJP005423

PATIENT
  Age: 15 Year
  Sex: Male
  Weight: 55.3 kg

DRUGS (10)
  1. LISDEXAMFETAMINE DIMESYLATE [Suspect]
     Active Substance: LISDEXAMFETAMINE DIMESYLATE
     Indication: Attention deficit hyperactivity disorder
     Dosage: 30 MILLIGRAM, QD
     Route: 048
     Dates: start: 20230324, end: 20230420
  2. LISDEXAMFETAMINE DIMESYLATE [Suspect]
     Active Substance: LISDEXAMFETAMINE DIMESYLATE
     Dosage: 50 MILLIGRAM, QD
     Route: 048
     Dates: start: 20230421
  3. RISPERDAL [Suspect]
     Active Substance: RISPERIDONE
     Indication: Product used for unknown indication
     Dosage: 6 MILLIGRAM
     Route: 065
  4. INTUNIV [Concomitant]
     Active Substance: GUANFACINE HYDROCHLORIDE
     Indication: Attention deficit hyperactivity disorder
     Dosage: 3 MILLIGRAM
     Route: 065
  5. CONCERTA [Concomitant]
     Active Substance: METHYLPHENIDATE HYDROCHLORIDE
     Indication: Attention deficit hyperactivity disorder
     Dosage: 27 MILLIGRAM
     Route: 065
     Dates: end: 20230421
  6. ATOMOXETINE HYDROCHLORIDE [Concomitant]
     Active Substance: ATOMOXETINE HYDROCHLORIDE
     Indication: Attention deficit hyperactivity disorder
     Dosage: 50 MILLIGRAM
     Route: 065
     Dates: end: 20230908
  7. ABILIFY [Concomitant]
     Active Substance: ARIPIPRAZOLE
     Dosage: 6 MILLIGRAM
     Route: 065
  8. Keishikashakuyakuto [Concomitant]
     Dosage: 5 GRAM
     Route: 065
     Dates: start: 20231110
  9. Shimotsuto [Concomitant]
     Dosage: 5 GRAM
     Route: 065
     Dates: start: 20231110
  10. LITHIUM CARBONATE [Concomitant]
     Active Substance: LITHIUM CARBONATE
     Dosage: 2 MILLIGRAM
     Route: 065
     Dates: start: 20231208

REACTIONS (2)
  - Bradycardia [Unknown]
  - Blood prolactin increased [Unknown]

NARRATIVE: CASE EVENT DATE: 20240315
